FAERS Safety Report 10090715 (Version 1)
Quarter: 2014Q2

REPORT INFORMATION
  Report Type: Spontaneous
  Country: TR (occurrence: TR)
  Receive Date: 20140421
  Receipt Date: 20140421
  Transmission Date: 20141212
  Serious: Yes (Other)
  Sender: FDA-Public Use
  Company Number: PHHY2014TR045736

PATIENT
  Age: 48 Year
  Sex: Male

DRUGS (7)
  1. RIBAVIRIN [Suspect]
     Indication: CHRONIC HEPATITIS C
     Dosage: 1000 MG, PER DAY
  2. RIBAVIRIN [Suspect]
     Indication: HEPATIC CIRRHOSIS
  3. PEGINTERFERON ALFA-2B [Suspect]
     Indication: CHRONIC HEPATITIS C
     Dosage: 20 UG, PER WEEK
  4. PEGINTERFERON ALFA-2B [Suspect]
     Indication: HEPATIC CIRRHOSIS
  5. TELAPREVIR [Suspect]
     Indication: CHRONIC HEPATITIS C
     Dosage: 375 MG, TID
  6. TELAPREVIR [Suspect]
     Indication: HEPATIC CIRRHOSIS
  7. CITALOPRAM [Concomitant]
     Indication: DEPRESSION

REACTIONS (9)
  - Haemoptysis [Unknown]
  - Serum ferritin increased [Unknown]
  - Blood uric acid increased [Unknown]
  - Insomnia [Unknown]
  - Pruritus generalised [Unknown]
  - Rash generalised [Unknown]
  - Fatigue [Unknown]
  - Cough [Unknown]
  - Asthenia [Unknown]
